FAERS Safety Report 14741603 (Version 1)
Quarter: 2018Q2

REPORT INFORMATION
  Report Type: Report from Study
  Country: US (occurrence: US)
  Receive Date: 20180410
  Receipt Date: 20180410
  Transmission Date: 20180711
  Serious: Yes (Other)
  Sender: FDA-Public Use
  Company Number: US-MALLINCKRODT-T201704135

PATIENT
  Age: 46 Year
  Sex: Female

DRUGS (6)
  1. REPOSITORY CORTICOTROPIN INJECTION [Suspect]
     Active Substance: CORTICOTROPIN
     Indication: GLOMERULONEPHRITIS MEMBRANOPROLIFERATIVE
     Dosage: 80 UNITS / 1 ML, 2 TIMES PER WEEK, (MONDAY/THURSDAY)
     Route: 058
     Dates: start: 20170921
  2. REPOSITORY CORTICOTROPIN INJECTION [Suspect]
     Active Substance: CORTICOTROPIN
     Dosage: 80 UNITS / 1 ML EVERY 3 DAYS / EVERY 72 HOURS
     Route: 058
  3. REPOSITORY CORTICOTROPIN INJECTION [Suspect]
     Active Substance: CORTICOTROPIN
     Dosage: 80 UNIT/ML ONCE A WEEK
     Route: 058
     Dates: end: 20180321
  4. REPOSITORY CORTICOTROPIN INJECTION [Suspect]
     Active Substance: CORTICOTROPIN
     Dosage: 80 UNITS / 1 ML, EVERY 3 DAYS/EVERY 72 HOURS
     Route: 058
  5. REPOSITORY CORTICOTROPIN INJECTION [Suspect]
     Active Substance: CORTICOTROPIN
     Dosage: 80 UNITS / 1 ML, EVERY 3 DAYS / EVERY 72 HOURS
  6. ALBUTEROL. [Suspect]
     Active Substance: ALBUTEROL
     Indication: PNEUMONIA
     Dosage: UNK
     Route: 065

REACTIONS (29)
  - Blood glucose decreased [Unknown]
  - Malaise [Unknown]
  - Abdominal pain upper [Unknown]
  - Hypertension [Unknown]
  - Infection [Unknown]
  - Pneumonia [Unknown]
  - Hyperventilation [Unknown]
  - Heart rate increased [Unknown]
  - Weight increased [Unknown]
  - Kidney infection [Unknown]
  - Haematuria [Unknown]
  - Feeling jittery [Unknown]
  - Chromaturia [Unknown]
  - Injection site pain [Unknown]
  - Appetite disorder [Unknown]
  - Night sweats [Unknown]
  - Abdominal distension [Unknown]
  - Blood glucose increased [Unknown]
  - Cushingoid [Unknown]
  - Dyspnoea [Unknown]
  - Mood swings [Unknown]
  - Middle insomnia [Unknown]
  - Glomerular filtration rate decreased [Unknown]
  - Adrenal insufficiency [Unknown]
  - Fatigue [Unknown]
  - Panic attack [Unknown]
  - Anxiety [Unknown]
  - Irritability [Unknown]
  - Hyperhidrosis [Unknown]

NARRATIVE: CASE EVENT DATE: 20171009
